FAERS Safety Report 15715546 (Version 4)
Quarter: 2019Q1

REPORT INFORMATION
  Report Type: Spontaneous
  Country: JP (occurrence: JP)
  Receive Date: 20181212
  Receipt Date: 20190125
  Transmission Date: 20190417
  Serious: Yes (Death)
  Sender: FDA-Public Use
  Company Number: JP-CELGENEUS-JPN-20181203907

PATIENT
  Age: 80 Year
  Sex: Female

DRUGS (1)
  1. REVLIMID [Suspect]
     Active Substance: LENALIDOMIDE
     Indication: 5Q MINUS SYNDROME
     Dosage: 5 MILLIGRAM
     Route: 048
     Dates: start: 20181115, end: 20181117

REACTIONS (2)
  - Myelodysplastic syndrome [Fatal]
  - Nausea [Recovered/Resolved]

NARRATIVE: CASE EVENT DATE: 20181117
